FAERS Safety Report 4747008-4 (Version None)
Quarter: 2005Q3

REPORT INFORMATION
  Report Type: 
  Country: None (occurrence: None)
  Receive Date: 20050817
  Receipt Date: 20050609
  Transmission Date: 20060218
  Serious: Yes (Hospitalization)
  Sender: FDA-Public Use
  Company Number: PHBS2005JP08425

PATIENT
  Age: 42 Year
  Sex: Female

DRUGS (14)
  1. DIOVAN [Suspect]
     Route: 048
     Dates: start: 20050501
  2. DIOVAN [Suspect]
     Dosage: 2800 MG, ONCE/SINGLE
     Route: 048
     Dates: start: 20050609, end: 20050609
  3. LIPITOR [Suspect]
     Dosage: UNK, UNK
     Route: 048
     Dates: start: 20050501
  4. LIPITOR [Suspect]
     Dosage: 360 MG, ONCE/SINGLE
     Route: 048
     Dates: start: 20050609, end: 20050609
  5. PARIET [Suspect]
     Route: 048
     Dates: start: 20050501
  6. PARIET [Suspect]
     Dosage: 380 MG, ONCE/SINGLE
     Route: 048
     Dates: start: 20050609, end: 20050609
  7. MINZAIN [Suspect]
     Route: 048
     Dates: start: 20050501
  8. MINZAIN [Suspect]
     Dosage: 1.25 MG, ONCE/SINGLE
     Route: 048
     Dates: start: 20050609, end: 20050609
  9. LOXOPROFEN SODIUM [Suspect]
     Route: 048
     Dates: start: 20050501
  10. LOXOPROFEN SODIUM [Suspect]
     Dosage: 30 DF, ONCE/SINGLE
     Route: 048
     Dates: start: 20050609, end: 20050609
  11. TROXSIN [Suspect]
     Route: 048
     Dates: start: 20050501
  12. TROXSIN [Suspect]
     Dosage: 29 DF, ONCE/SINGLE
     Route: 048
     Dates: start: 20050609, end: 20050609
  13. LORAZEPAM [Suspect]
     Route: 048
     Dates: start: 20050501
  14. LORAZEPAM [Suspect]
     Dosage: 67 DF, ONCE/SINGLE
     Route: 048
     Dates: start: 20050609, end: 20050609

REACTIONS (5)
  - DRUG TOXICITY [None]
  - HEART RATE INCREASED [None]
  - HYPERTENSION [None]
  - OVERDOSE [None]
  - SUICIDE ATTEMPT [None]
